FAERS Safety Report 17077440 (Version 4)
Quarter: 2020Q1

REPORT INFORMATION
  Report Type: Spontaneous
  Country: CH (occurrence: CH)
  Receive Date: 20191126
  Receipt Date: 20200127
  Transmission Date: 20200409
  Serious: Yes (Hospitalization, Disabling, Other)
  Sender: FDA-Public Use
  Company Number: CH-AMGEN-CHESP2019192276

PATIENT
  Age: 69 Year
  Sex: Female
  Weight: 91 kg

DRUGS (1)
  1. PROLIA [Suspect]
     Active Substance: DENOSUMAB
     Indication: OSTEOPOROSIS POSTMENOPAUSAL
     Dosage: 60 MILLIGRAM, Q6MO
     Route: 058
     Dates: end: 20180919

REACTIONS (17)
  - Postoperative wound infection [Unknown]
  - Thoracic vertebral fracture [Unknown]
  - Pathological fracture [Not Recovered/Not Resolved]
  - Intervertebral disc protrusion [Unknown]
  - Staphylococcal bacteraemia [Unknown]
  - Rectal cancer [Unknown]
  - Renal cyst [Unknown]
  - Arthropathy [Unknown]
  - Spinal fusion surgery [Unknown]
  - Apical granuloma [Unknown]
  - Cervical radiculopathy [Unknown]
  - Lung cyst [Unknown]
  - Hepatic calcification [Unknown]
  - Cholelithiasis [Unknown]
  - Rebound effect [Not Recovered/Not Resolved]
  - Adenocarcinoma [Unknown]
  - Hepatic lesion [Unknown]

NARRATIVE: CASE EVENT DATE: 20190301
